FAERS Safety Report 7927751-6 (Version None)
Quarter: 2011Q4

REPORT INFORMATION
  Report Type: 
  Country: None (occurrence: None)
  Receive Date: 20111118
  Receipt Date: 20110728
  Transmission Date: 20120403
  Serious: No
  Sender: FDA-Public Use
  Company Number: US-BRISTOL-MYERS SQUIBB COMPANY-15857287

PATIENT
  Age: 62 Year
  Sex: Female

DRUGS (4)
  1. LIPITOR [Concomitant]
  2. SYNTHROID [Concomitant]
  3. GLIMEPIRIDE [Concomitant]
  4. GLUCOPHAGE XR [Suspect]
     Dosage: LABEL ON BOTT-1230849A1,LOT:9B4306B,EXP:FEB2012,PRES FILLED ON11MAY11 FOR 270 TABS,RX 1Q MOR,2Q EVE

REACTIONS (1)
  - BLOOD GLUCOSE INCREASED [None]
